FAERS Safety Report 8141891-0 (Version None)
Quarter: 2012Q1

REPORT INFORMATION
  Report Type: 
  Country: None (occurrence: None)
  Receive Date: 20120216
  Receipt Date: 20120209
  Transmission Date: 20120608
  Serious: Yes (Death, Hospitalization)
  Sender: FDA-Public Use
  Company Number: US-GLAXOSMITHKLINE-A0886897A

PATIENT
  Age: 53 Year
  Sex: Female

DRUGS (5)
  1. CELEXA [Concomitant]
  2. ACTOS [Concomitant]
     Dates: start: 20060301, end: 20090101
  3. AVANDIA [Suspect]
     Indication: DIABETES MELLITUS
     Dosage: 8MG PER DAY
     Route: 048
     Dates: start: 20030814, end: 20060301
  4. GLYBURIDE [Concomitant]
  5. LEXAPRO [Concomitant]

REACTIONS (5)
  - CEREBROVASCULAR ACCIDENT [None]
  - DEATH [None]
  - MYOCARDIAL INFARCTION [None]
  - HEART RATE IRREGULAR [None]
  - RESPIRATORY FAILURE [None]
